FAERS Safety Report 9018425 (Version 1)
Quarter: 2013Q1

REPORT INFORMATION
  Report Type: Spontaneous
  Country: US (occurrence: None)
  Receive Date: 20130111
  Receipt Date: 20130111
  Transmission Date: 20140127
  Serious: Yes (Hospitalization)
  Sender: FDA-Public Use
  Company Number: None

PATIENT
  Age: 74 Year
  Sex: Male
  Weight: 79 kg

DRUGS (2)
  1. LENALIDOMIDE [Suspect]
     Route: 048
     Dates: start: 20120915
  2. AZACITIDINE [Suspect]
     Dosage: DAYS 1-5 IV
     Route: 042
     Dates: start: 20120915

REACTIONS (1)
  - Scrotal infection [None]
